FAERS Safety Report 12515033 (Version 4)
Quarter: 2016Q3

REPORT INFORMATION
  Report Type: Spontaneous
  Country: US (occurrence: US)
  Receive Date: 20160630
  Receipt Date: 20160908
  Transmission Date: 20161109
  Serious: No
  Sender: FDA-Public Use
  Company Number: US-009507513-1606USA013555

PATIENT
  Age: 30 Year
  Sex: Female
  Weight: 93.88 kg

DRUGS (2)
  1. NEXPLANON [Suspect]
     Active Substance: ETONOGESTREL
     Indication: CONTRACEPTION
     Dosage: 1 SINGLE ROD, IN THE INNER SIDE OF THE NON-DOMINAT UPPER ARM
     Route: 059
     Dates: start: 20160112, end: 20160627
  2. NEXPLANON [Suspect]
     Active Substance: ETONOGESTREL
     Dosage: SAME INSERTION CHANNEL
     Route: 059
     Dates: start: 20160627

REACTIONS (6)
  - Implant site pain [Recovered/Resolved]
  - Device deployment issue [Not Recovered/Not Resolved]
  - Device deployment issue [Recovered/Resolved]
  - Device breakage [Recovered/Resolved]
  - Medical device discomfort [Recovered/Resolved]
  - Implant site fibrosis [Recovered/Resolved]

NARRATIVE: CASE EVENT DATE: 20160112
